FAERS Safety Report 4524521-6 (Version None)
Quarter: 2005Q1

REPORT INFORMATION
  Report Type: 
  Country: None (occurrence: None)
  Receive Date: 20041117
  Receipt Date: 20040128
  Transmission Date: 20050727
  Serious: Yes (Hospitalization)
  Sender: FDA-Public Use
  Company Number: US-JNJFOC-20040100186

PATIENT
  Age: 56 Year
  Sex: Female

DRUGS (6)
  1. LEVAQUIN [Suspect]
     Indication: SINUSITIS
     Dosage: 500 MG, 1 IN 1 DAY, ORAL
     Route: 048
     Dates: start: 20031031
  2. ASPIRIN TAB [Concomitant]
  3. ALLEGRA-D [Concomitant]
  4. PULMICORT (BUDENOSIDE) [Concomitant]
  5. PREVACID [Concomitant]
  6. EES (ERYTHROMYCIN ETHYLSUCCINATE) [Concomitant]

REACTIONS (1)
  - ATRIAL FIBRILLATION [None]
